FAERS Safety Report 9511181 (Version 1)
Quarter: 2013Q3

REPORT INFORMATION
  Report Type: Spontaneous
  Country: US (occurrence: None)
  Receive Date: 20130909
  Receipt Date: 20130909
  Transmission Date: 20140515
  Serious: Yes (Hospitalization)
  Sender: FDA-Public Use
  Company Number: None

PATIENT
  Age: 73 Year
  Sex: Female
  Weight: 45.36 kg

DRUGS (6)
  1. CLOPIDOGREL [Suspect]
     Indication: ANTICOAGULANT THERAPY
     Route: 048
     Dates: start: 20130821, end: 20130826
  2. LIPITOR [Concomitant]
  3. AMLODBENAZP [Concomitant]
  4. PLAVIX [Concomitant]
  5. ATENOLOL [Concomitant]
  6. TYLENOL PM [Concomitant]

REACTIONS (4)
  - Malaise [None]
  - Dizziness [None]
  - Fatigue [None]
  - Pain [None]
